FAERS Safety Report 6156506-0 (Version None)
Quarter: 2009Q2

REPORT INFORMATION
  Report Type: 
  Country: None (occurrence: None)
  Receive Date: 20090413
  Receipt Date: 20081119
  Transmission Date: 20091009
  Serious: Yes (Death)
  Sender: FDA-Public Use
  Company Number: OPIR20080030

PATIENT
  Age: 22 Year
  Sex: Male
  Weight: 100.2449 kg

DRUGS (2)
  1. OPANA [Suspect]
     Dates: end: 20080101
  2. ALCOHOL [Suspect]
     Dates: end: 20080101

REACTIONS (10)
  - ABNORMAL BEHAVIOUR [None]
  - ACCIDENTAL DEATH [None]
  - HEPATIC CONGESTION [None]
  - MULTI-ORGAN DISORDER [None]
  - OVERDOSE [None]
  - PANCREATIC DISORDER [None]
  - PULMONARY CONGESTION [None]
  - PULMONARY GRANULOMA [None]
  - SPLEEN CONGESTION [None]
  - UNRESPONSIVE TO STIMULI [None]
